FAERS Safety Report 21134159 (Version 2)
Quarter: 2022Q3

REPORT INFORMATION
  Report Type: Spontaneous
  Country: DK (occurrence: DK)
  Receive Date: 20220726
  Receipt Date: 20220809
  Transmission Date: 20221026
  Serious: Yes (Other)
  Sender: FDA-Public Use
  Company Number: DK-SA-SAC20220722001196

PATIENT
  Age: 44 Year
  Sex: Male

DRUGS (1)
  1. CEMIPLIMAB [Suspect]
     Active Substance: CEMIPLIMAB
     Indication: Product used for unknown indication
     Dosage: UNK UNK, Q3W
     Route: 065

REACTIONS (9)
  - Epilepsy [Recovering/Resolving]
  - Syncope [Unknown]
  - Muscle twitching [Recovering/Resolving]
  - Condition aggravated [Unknown]
  - Vision blurred [Recovering/Resolving]
  - Tremor [Unknown]
  - Blood pressure decreased [Unknown]
  - Fatigue [Unknown]
  - Headache [Recovering/Resolving]

NARRATIVE: CASE EVENT DATE: 20220711
